FAERS Safety Report 17452381 (Version 1)
Quarter: 2020Q1

REPORT INFORMATION
  Report Type: Spontaneous
  Country: DK (occurrence: DK)
  Receive Date: 20200224
  Receipt Date: 20200224
  Transmission Date: 20200409
  Serious: Yes (Death)
  Sender: FDA-Public Use
  Company Number: DK-SEATTLE GENETICS-2020SGN01208

PATIENT
  Age: 13 Year
  Sex: Female

DRUGS (5)
  1. ADCETRIS [Suspect]
     Active Substance: BRENTUXIMAB VEDOTIN
     Indication: HODGKIN^S DISEASE
     Dosage: 1.2 MILLIGRAM/KILOGRAM
     Route: 065
  2. ETOPOSIDE. [Suspect]
     Active Substance: ETOPOSIDE
     Indication: HODGKIN^S DISEASE
     Dosage: UNK
     Route: 065
  3. VINCRISTINE [Suspect]
     Active Substance: VINCRISTINE
     Indication: HODGKIN^S DISEASE
     Dosage: 1.5 MILLIGRAM/SQ. METER
     Route: 065
  4. DOXORUBICIN [Suspect]
     Active Substance: DOXORUBICIN
     Indication: HODGKIN^S DISEASE
     Dosage: 40 MILLIGRAM/SQ. METER
     Route: 065
  5. PREDNISOLONE. [Suspect]
     Active Substance: PREDNISOLONE
     Indication: HODGKIN^S DISEASE
     Dosage: 60 MILLIGRAM/SQ. METER, QD
     Route: 065

REACTIONS (6)
  - Cardiac failure [Fatal]
  - Gastrointestinal haemorrhage [Fatal]
  - Multiple organ dysfunction syndrome [Fatal]
  - Neutropenic sepsis [Fatal]
  - Toxicity to various agents [Fatal]
  - Sepsis [Fatal]
